FAERS Safety Report 9770937 (Version 5)
Quarter: 2017Q2

REPORT INFORMATION
  Report Type: Spontaneous
  Country: GB (occurrence: GB)
  Receive Date: 20131218
  Receipt Date: 20170613
  Transmission Date: 20170830
  Serious: Yes (Hospitalization, Congenital Anomaly, Other)
  Sender: FDA-Public Use
  Company Number: GB-PFIZER INC-2013346259

PATIENT
  Sex: Male

DRUGS (16)
  1. ZOPICLONE [Suspect]
     Active Substance: ZOPICLONE
     Indication: INSOMNIA
     Dosage: 15 MG, AT NIGHT
     Route: 064
     Dates: start: 20120210, end: 20120718
  2. ZOPICLONE [Suspect]
     Active Substance: ZOPICLONE
     Indication: SLEEP DISORDER
  3. RISPERDAL [Suspect]
     Active Substance: RISPERIDONE
     Dosage: 6 MG, IN THE MORNING
     Route: 064
     Dates: start: 20120609, end: 20120821
  4. PROMETHAZINE [Suspect]
     Active Substance: PROMETHAZINE\PROMETHAZINE HYDROCHLORIDE
     Dosage: 25 MG, ONCE AS NEEDED
     Route: 064
     Dates: start: 20111216
  5. RISPERDAL [Suspect]
     Active Substance: RISPERIDONE
     Indication: SCHIZOPHRENIA
     Dosage: 3 MG, IN THE MORNING AND 4 MG AT NIGH
     Route: 064
     Dates: start: 20120221, end: 20120307
  6. CYCLIZINE [Suspect]
     Active Substance: CYCLIZINE
     Dosage: 50MG, UNK
     Route: 064
     Dates: start: 20111228, end: 20120131
  7. CHLORPROMAZINE. [Suspect]
     Active Substance: CHLORPROMAZINE
     Dosage: 200 MG, 3X/DAY
     Route: 064
     Dates: start: 20120109, end: 20120114
  8. HALOPERIDOL. [Suspect]
     Active Substance: HALOPERIDOL
     Dosage: 5 MG, 2X/DAY
     Route: 064
     Dates: start: 20111229, end: 20120104
  9. CHLORPROMAZINE. [Suspect]
     Active Substance: CHLORPROMAZINE
     Indication: SCHIZOPHRENIA
     Dosage: 25 MG, 3X/DAY
     Route: 064
     Dates: start: 20111215, end: 20121219
  10. RISPERDAL [Suspect]
     Active Substance: RISPERIDONE
     Dosage: 3 MG, 2X/DAY
     Route: 064
     Dates: start: 20120308, end: 20120609
  11. SYNTOMETRINE [Suspect]
     Active Substance: ERGONOVINE\OXYTOCIN
     Dosage: UNK
     Route: 064
     Dates: start: 20120718, end: 20120718
  12. SENNA [Suspect]
     Active Substance: SENNA LEAF\SENNOSIDES\SENNOSIDES A AND B
     Dosage: 15MG, UNK
     Route: 064
     Dates: start: 20120116
  13. ALCOHOL. [Suspect]
     Active Substance: ALCOHOL
     Dosage: UNK
     Route: 064
  14. OLANZAPINE. [Suspect]
     Active Substance: OLANZAPINE
     Dosage: 5 MG, 1X/DAY
     Route: 064
     Dates: start: 20120112, end: 20120114
  15. HALOPERIDOL. [Suspect]
     Active Substance: HALOPERIDOL
     Dosage: 5 MG, 3X/DAY
     Route: 064
     Dates: start: 20120105, end: 20120109
  16. ENTONOX [Suspect]
     Active Substance: NITROUS OXIDE\OXYGEN
     Indication: ANALGESIC THERAPY
     Dosage: UNK, ONCE AS NECESSARY
     Route: 064
     Dates: start: 20120718, end: 20120718

REACTIONS (5)
  - Dextrocardia [Unknown]
  - Withdrawal syndrome [Unknown]
  - Foetal alcohol syndrome [Unknown]
  - Visual impairment [Unknown]
  - Maternal exposure during pregnancy [Unknown]
